FAERS Safety Report 7737008-4 (Version None)
Quarter: 2011Q3

REPORT INFORMATION
  Report Type: 
  Country: None (occurrence: None)
  Receive Date: 20110908
  Receipt Date: 20110828
  Transmission Date: 20111222
  Serious: Yes (Hospitalization)
  Sender: FDA-Public Use
  Company Number: US-ELI_LILLY_AND_COMPANY-US201105008774

PATIENT
  Sex: Male

DRUGS (5)
  1. FORTEO [Suspect]
     Indication: OSTEOPOROSIS
     Dosage: 20 UG, QD
     Dates: start: 20110518, end: 20110601
  2. ANALGESICS [Concomitant]
     Indication: PAIN
  3. OXYCONTIN [Concomitant]
  4. FORTEO [Suspect]
     Dosage: 20 UG, QD
     Dates: start: 20110613
  5. NORCO [Concomitant]

REACTIONS (9)
  - SLEEP DISORDER DUE TO A GENERAL MEDICAL CONDITION [None]
  - NAUSEA [None]
  - PAIN [None]
  - ROAD TRAFFIC ACCIDENT [None]
  - DYSPNOEA [None]
  - PRURITUS [None]
  - HOSPITALISATION [None]
  - SWOLLEN TONGUE [None]
  - LIP SWELLING [None]
